FAERS Safety Report 12651121 (Version 1)
Quarter: 2016Q3

REPORT INFORMATION
  Report Type: Spontaneous
  Country: US (occurrence: US)
  Receive Date: 20160815
  Receipt Date: 20160815
  Transmission Date: 20161109
  Serious: No
  Sender: FDA-Public Use
  Company Number: US-JAZZ-2016-US-005092

PATIENT
  Sex: Female

DRUGS (43)
  1. SEROQUEL [Suspect]
     Active Substance: QUETIAPINE FUMARATE
     Indication: PRODUCT USED FOR UNKNOWN INDICATION
  2. LYRICA [Concomitant]
     Active Substance: PREGABALIN
  3. CLARITIN [Concomitant]
     Active Substance: LORATADINE
  4. PROBIOTIC [Concomitant]
     Active Substance: PROBIOTICS NOS
  5. ESCITALOPRAM [Concomitant]
     Active Substance: ESCITALOPRAM OXALATE
  6. FLAGYL [Concomitant]
     Active Substance: METRONIDAZOLE\METRONIDAZOLE HYDROCHLORIDE
  7. ZOFRAN [Concomitant]
     Active Substance: ONDANSETRON HYDROCHLORIDE
  8. XYREM [Suspect]
     Active Substance: SODIUM OXYBATE
     Dosage: DOSE ADJUSTMENTS
     Route: 048
  9. GINGER. [Concomitant]
     Active Substance: GINGER
  10. NEXIUM [Concomitant]
     Active Substance: ESOMEPRAZOLE MAGNESIUM
  11. PRENATAL DHA [Concomitant]
  12. ALBUTEROL SULFATE. [Concomitant]
     Active Substance: ALBUTEROL SULFATE
  13. LUTEIN [Concomitant]
     Active Substance: LUTEIN
  14. XYREM [Suspect]
     Active Substance: SODIUM OXYBATE
     Dosage: 4.5 G, BID
     Route: 048
     Dates: start: 201502
  15. VITAMIN C [Concomitant]
     Active Substance: ASCORBIC ACID
  16. HYDROXYZINE HCL [Concomitant]
     Active Substance: HYDROXYZINE HYDROCHLORIDE
  17. PROMETHAZINE [Concomitant]
     Active Substance: PROMETHAZINE\PROMETHAZINE HYDROCHLORIDE
  18. ALEVE [Concomitant]
     Active Substance: NAPROXEN SODIUM
  19. CALCIUM W/VITAMIN D [Concomitant]
     Active Substance: CALCIUM\VITAMIN D
  20. VITAMIN B2 [Concomitant]
     Active Substance: RIBOFLAVIN
  21. OMEPRAZOLE. [Concomitant]
     Active Substance: OMEPRAZOLE
  22. RIBOFLAVIN [Concomitant]
     Active Substance: RIBOFLAVIN
  23. RIFAMPIN. [Concomitant]
     Active Substance: RIFAMPIN
  24. XYREM [Suspect]
     Active Substance: SODIUM OXYBATE
     Indication: NARCOLEPSY
     Dosage: 2.25 G, BID
     Route: 048
     Dates: start: 201401, end: 201402
  25. WELLBUTRIN [Concomitant]
     Active Substance: BUPROPION HYDROCHLORIDE
  26. BIOTIN [Concomitant]
     Active Substance: BIOTIN
  27. FLONASE [Concomitant]
     Active Substance: FLUTICASONE PROPIONATE
  28. MINOCYCLINE HCL [Concomitant]
     Active Substance: MINOCYCLINE HYDROCHLORIDE
  29. ZINC GLUCONATE [Concomitant]
     Active Substance: ZINC GLUCONATE
  30. PEPCID AC [Concomitant]
     Active Substance: FAMOTIDINE
  31. AMITRIPTYLINE HCL [Concomitant]
     Active Substance: AMITRIPTYLINE
  32. TYLENOL EXTRA STRENGTH [Concomitant]
     Active Substance: ACETAMINOPHEN
  33. QUETIAPINE FUMARATE. [Concomitant]
     Active Substance: QUETIAPINE FUMARATE
  34. IBUPROFEN. [Concomitant]
     Active Substance: IBUPROFEN
  35. VITAMIN D3 [Concomitant]
     Active Substance: CHOLECALCIFEROL
  36. CARAFATE [Concomitant]
     Active Substance: SUCRALFATE
  37. TRAMADOL HCL [Concomitant]
     Active Substance: TRAMADOL HYDROCHLORIDE
  38. LAMOTRIGINE. [Concomitant]
     Active Substance: LAMOTRIGINE
  39. GABAPENTIN. [Concomitant]
     Active Substance: GABAPENTIN
  40. SPIRONOLACTONE. [Concomitant]
     Active Substance: SPIRONOLACTONE
  41. BUSPIRONE HCL [Concomitant]
     Active Substance: BUSPIRONE HYDROCHLORIDE
  42. OXYBUTYNIN [Concomitant]
     Active Substance: OXYBUTYNIN
  43. PROPRANOLOL [Concomitant]
     Active Substance: PROPRANOLOL\PROPRANOLOL HYDROCHLORIDE

REACTIONS (5)
  - Nausea [Not Recovered/Not Resolved]
  - Temporomandibular joint syndrome [Unknown]
  - Fatigue [Unknown]
  - Drug ineffective [Unknown]
  - Abdominal discomfort [Unknown]
